FAERS Safety Report 9095158 (Version 2)
Quarter: 2013Q1

REPORT INFORMATION
  Report Type: Spontaneous
  Country: US (occurrence: None)
  Receive Date: 20130122
  Receipt Date: 20130122
  Transmission Date: 20140127
  Serious: Yes (Death, Hospitalization)
  Sender: FDA-Public Use
  Company Number: DKLU1087956

PATIENT
  Age: 15 Month
  Sex: Female

DRUGS (4)
  1. SABRIL (FOR ORAL SOLUTION) (SABRIL) (VIGABATRIN) (500 MG, POWDER FOR ORAL SOLUTION) [Suspect]
     Route: 048
  2. PHENOBARBITAL (PHENOBARBITAL) [Concomitant]
  3. ZANTAC (RANITIDINE HYDROCHLORIDE) [Concomitant]
  4. CYTRA-K (MIST. POT. CIT.) [Concomitant]

REACTIONS (2)
  - Death [None]
  - Respiratory failure [None]
